FAERS Safety Report 12442919 (Version 1)
Quarter: 2016Q2

REPORT INFORMATION
  Report Type: Spontaneous
  Country: US (occurrence: None)
  Receive Date: 20160606
  Receipt Date: 20160606
  Transmission Date: 20160815
  Serious: No
  Sender: FDA-Public Use
  Company Number: None

PATIENT
  Age: 61 Year
  Sex: Female
  Weight: 92.53 kg

DRUGS (3)
  1. ALEVE [Concomitant]
     Active Substance: NAPROXEN SODIUM
  2. NEULASTA [Suspect]
     Active Substance: PEGFILGRASTIM
     Dates: start: 20160527, end: 20160530
  3. DEXAMETHASONE. [Concomitant]
     Active Substance: DEXAMETHASONE

REACTIONS (2)
  - Medical device site haemorrhage [None]
  - Thermal burn [None]

NARRATIVE: CASE EVENT DATE: 20160530
